FAERS Safety Report 5940039-8 (Version None)
Quarter: 2008Q4

REPORT INFORMATION
  Report Type: 
  Country: None (occurrence: None)
  Receive Date: 20081104
  Receipt Date: 20081024
  Transmission Date: 20090506
  Serious: Yes (Other)
  Sender: FDA-Public Use
  Company Number: PHHY2008CA26094

PATIENT
  Sex: Male

DRUGS (10)
  1. CLOZARIL [Suspect]
     Dosage: UNK
     Dates: start: 20030221
  2. CLOZARIL [Suspect]
     Dosage: 100 MG BID AT 300 QHS
     Dates: start: 20041224
  3. CLOZARIL [Suspect]
     Dosage: 750 MG, QHS
     Dates: start: 20060620
  4. CLOZARIL [Suspect]
     Dosage: 750 MG, QHS
     Dates: start: 20070717
  5. CLOZARIL [Suspect]
     Dosage: 750 MG, QHS
     Dates: start: 20070730
  6. CLOZARIL [Suspect]
     Dosage: 750 MG, QHS
     Dates: start: 20080804
  7. CLOZARIL [Suspect]
     Dosage: 650 MG, QHS
     Dates: start: 20081007
  8. CLOZARIL [Suspect]
     Dosage: 550 MG, QHS
     Dates: start: 20081023
  9. ZYPREXA [Concomitant]
     Dosage: 2.5 MG, QD
     Dates: start: 20071101
  10. RITALIN [Concomitant]
     Dosage: 10 MG, BID
     Dates: start: 20050201

REACTIONS (6)
  - ANAEMIA [None]
  - ANOREXIA [None]
  - DRUG LEVEL INCREASED [None]
  - GASTROINTESTINAL DISORDER [None]
  - LUNG DISORDER [None]
  - WEIGHT DECREASED [None]
